FAERS Safety Report 8595265-9 (Version None)
Quarter: 2012Q3

REPORT INFORMATION
  Report Type: 
  Country: None (occurrence: None)
  Receive Date: 20120815
  Receipt Date: 20120808
  Transmission Date: 20120928
  Serious: Yes (Hospitalization)
  Sender: FDA-Public Use
  Company Number: US-PFIZER INC-2012193460

PATIENT
  Age: 42 Year
  Sex: Male

DRUGS (4)
  1. SILDENAFIL CITRATE [Suspect]
     Indication: PULMONARY HYPERTENSION
     Dosage: 20 MG, 3X/DAY
  2. NESIRITIDE [Concomitant]
  3. HYDRALAZINE [Concomitant]
     Dosage: UNK, THRICE-DAILY
     Route: 048
  4. ISOSORBIDE DINITRATE [Concomitant]

REACTIONS (4)
  - CARDIAC ARREST [None]
  - VENTRICULAR FIBRILLATION [None]
  - VENTRICULAR TACHYCARDIA [None]
  - SUDDEN DEATH [None]
